FAERS Safety Report 6120804-7 (Version None)
Quarter: 2009Q1

REPORT INFORMATION
  Report Type: 
  Country: None (occurrence: None)
  Receive Date: 20090317
  Receipt Date: 20090309
  Transmission Date: 20090719
  Serious: Yes (Disabling)
  Sender: FDA-Public Use
  Company Number: DE-ASTRAZENECA-2009PK00806

PATIENT
  Age: 19272 Day
  Sex: Female
  Weight: 82 kg

DRUGS (1)
  1. ARIMIDEX [Suspect]
     Indication: BREAST CANCER FEMALE
     Route: 048
     Dates: start: 20080228, end: 20081015

REACTIONS (1)
  - VISUAL ACUITY REDUCED [None]
